FAERS Safety Report 9652585 (Version 1)
Quarter: 2013Q4

REPORT INFORMATION
  Report Type: Spontaneous
  Country: FR (occurrence: FR)
  Receive Date: 20131029
  Receipt Date: 20131029
  Transmission Date: 20140711
  Serious: Yes (Hospitalization)
  Sender: FDA-Public Use
  Company Number: FR-ROCHE-1294609

PATIENT
  Age: 32 Year
  Sex: Male

DRUGS (2)
  1. ROCEPHINE [Suspect]
     Indication: FUSOBACTERIUM INFECTION
     Route: 065
     Dates: start: 20130927, end: 20131001
  2. AMOXICILLINE [Concomitant]

REACTIONS (1)
  - Hepatocellular injury [Recovered/Resolved]
